FAERS Safety Report 6383742-0 (Version None)
Quarter: 2009Q3

REPORT INFORMATION
  Report Type: 
  Country: None (occurrence: None)
  Receive Date: 20090929
  Receipt Date: 20090929
  Transmission Date: 20100115
  Serious: Yes (Other)
  Sender: FDA-Public Use
  Company Number: None

PATIENT
  Age: 43 Year
  Sex: Male
  Weight: 97.5234 kg

DRUGS (1)
  1. ICY HOT BALM 3.5 OZ EXTRA STRENGTH CHATTEM, INC. [Suspect]
     Indication: PAIN IN EXTREMITY
     Dates: start: 20090927, end: 20090927

REACTIONS (4)
  - BLISTER [None]
  - BURNS SECOND DEGREE [None]
  - NO THERAPEUTIC RESPONSE [None]
  - SKIN IRRITATION [None]
